FAERS Safety Report 19119408 (Version 1)
Quarter: 2021Q2

REPORT INFORMATION
  Report Type: Spontaneous
  Country: US (occurrence: US)
  Receive Date: 20210411
  Receipt Date: 20210411
  Transmission Date: 20210717
  Serious: Yes (Other)
  Sender: FDA-Public Use
  Company Number: US-AUROBINDO-AUR-APL-2013-04156

PATIENT
  Age: 79 Year
  Sex: Female

DRUGS (6)
  1. ASPIRIN. [Suspect]
     Active Substance: ASPIRIN
     Indication: PRODUCT USED FOR UNKNOWN INDICATION
     Dosage: UNK
     Route: 065
  2. TORADOL [Suspect]
     Active Substance: KETOROLAC TROMETHAMINE
     Indication: PRODUCT USED FOR UNKNOWN INDICATION
     Dosage: UNK
     Route: 065
  3. CIPROFLOXACIN. [Suspect]
     Active Substance: CIPROFLOXACIN
     Indication: PROPHYLAXIS URINARY TRACT INFECTION
     Dosage: UNK
     Route: 065
  4. ATORVASTATIN [Suspect]
     Active Substance: ATORVASTATIN
     Indication: PRODUCT USED FOR UNKNOWN INDICATION
     Dosage: UNK
     Route: 065
  5. VANCOMYCIN [Suspect]
     Active Substance: VANCOMYCIN
     Indication: PRODUCT USED FOR UNKNOWN INDICATION
     Dosage: UNK UNK,UNK,
     Route: 065
  6. SPIRONOLACTONE. [Suspect]
     Active Substance: SPIRONOLACTONE
     Indication: PRODUCT USED FOR UNKNOWN INDICATION
     Dosage: UNK
     Route: 065

REACTIONS (16)
  - Dysarthria [Recovering/Resolving]
  - Rash [Recovering/Resolving]
  - Lymphocyte morphology abnormal [Recovering/Resolving]
  - Rash maculo-papular [Recovering/Resolving]
  - Facial paralysis [Recovering/Resolving]
  - Somnolence [Recovered/Resolved]
  - Drug reaction with eosinophilia and systemic symptoms [Recovering/Resolving]
  - Delirium [Recovered/Resolved]
  - Leukocytosis [Recovering/Resolving]
  - Cerebral ischaemia [Recovering/Resolving]
  - Rash erythematous [Recovering/Resolving]
  - Oliguria [Recovering/Resolving]
  - Liver function test increased [Recovering/Resolving]
  - Cerebrovascular accident [Recovering/Resolving]
  - Pyrexia [Recovered/Resolved]
  - Skin plaque [Recovering/Resolving]
